FAERS Safety Report 4647732-8 (Version None)
Quarter: 2005Q2

REPORT INFORMATION
  Report Type: 
  Country: None (occurrence: None)
  Receive Date: 20050406
  Receipt Date: 20050328
  Transmission Date: 20051028
  Serious: No
  Sender: FDA-Public Use
  Company Number: 2005-00629

PATIENT
  Age: 20 Year
  Sex: Female

DRUGS (1)
  1. TUBERSOL [Suspect]
     Indication: TUBERCULIN TEST
     Dosage: I.D.
     Route: 026
     Dates: start: 20050128

REACTIONS (4)
  - COW POX [None]
  - LYMPHADENOPATHY [None]
  - RESPIRATORY DISORDER [None]
  - SELF-MEDICATION [None]
